FAERS Safety Report 5572065-5 (Version None)
Quarter: 2007Q4

REPORT INFORMATION
  Report Type: 
  Country: None (occurrence: None)
  Receive Date: 20071221
  Receipt Date: 20071211
  Transmission Date: 20080405
  Serious: Yes (Hospitalization, Other)
  Sender: FDA-Public Use
  Company Number: US-PFIZER INC-2007066298

PATIENT
  Age: 66 Year
  Sex: Female

DRUGS (8)
  1. CHANTIX [Suspect]
     Indication: NICOTINE DEPENDENCE
     Dates: start: 20070405, end: 20070412
  2. ZOLOFT [Concomitant]
  3. ZYPREXA [Concomitant]
  4. ALBUTEROL [Concomitant]
  5. SYNTHROID [Concomitant]
  6. PREMARIN [Concomitant]
  7. ZOCOR [Concomitant]
  8. PLAVIX [Concomitant]

REACTIONS (3)
  - CONFUSIONAL STATE [None]
  - PARANOIA [None]
  - PSYCHOTIC DISORDER [None]
